FAERS Safety Report 9794270 (Version 1)
Quarter: 2014Q1

REPORT INFORMATION
  Report Type: Spontaneous
  Country: EC (occurrence: EC)
  Receive Date: 20140102
  Receipt Date: 20140102
  Transmission Date: 20141002
  Serious: Yes (Other)
  Sender: FDA-Public Use
  Company Number: EC-UCBSA-105988

PATIENT
  Age: 33 Year
  Sex: Male

DRUGS (2)
  1. KEPPRA [Suspect]
     Indication: EPILEPSY
     Dosage: DAILY DOSE: 2000  MG
  2. KEPPRA [Suspect]
     Indication: EPILEPSY
     Dosage: DAILY DOSE: 1000 MG

REACTIONS (2)
  - Psychotic disorder [Recovered/Resolved]
  - Homicidal ideation [Recovered/Resolved]
